FAERS Safety Report 11182812 (Version 3)
Quarter: 2015Q4

REPORT INFORMATION
  Report Type: Report from Study
  Country: MX (occurrence: MX)
  Receive Date: 20150611
  Receipt Date: 20151107
  Transmission Date: 20160304
  Serious: Yes (Other)
  Sender: FDA-Public Use
  Company Number: PHHY2015MX066255

PATIENT
  Age: 77 Year
  Sex: Female

DRUGS (13)
  1. EXFORGE [Suspect]
     Active Substance: AMLODIPINE BESYLATE\VALSARTAN
     Indication: BLOOD PRESSURE ABNORMAL
     Dosage: 1 DF (5/160), UNK
     Route: 048
  2. SIRDALUD [Suspect]
     Active Substance: TIZANIDINE
     Indication: BLOOD PRESSURE ABNORMAL
     Dosage: 1 OT, QD
     Route: 048
  3. ZOFILIP [Concomitant]
     Indication: BLOOD CHOLESTEROL INCREASED
  4. ACETAMINOPHEN\TRAMADOL HYDROCHLORIDE [Concomitant]
     Active Substance: ACETAMINOPHEN\TRAMADOL HYDROCHLORIDE
     Indication: PRODUCT USED FOR UNKNOWN INDICATION
     Route: 065
  5. EXFORGE HCT [Suspect]
     Active Substance: AMLODIPINE BESYLATE\HYDROCHLOROTHIAZIDE\VALSARTAN
     Dosage: 2 DF (VALSARTAN:UNK/AMLODIPINE 5 MG/HYDROCHLOROTHIAZIDE:UNK), QD (1 IN MORNING, 1 AT NIGHT)
     Route: 065
  6. LAXOYA [Concomitant]
     Indication: DYSPEPSIA
  7. EXFORGE HCT [Suspect]
     Active Substance: AMLODIPINE BESYLATE\HYDROCHLOROTHIAZIDE\VALSARTAN
     Indication: BLOOD PRESSURE ABNORMAL
     Dosage: UNK
     Route: 065
  8. ZOFILIP [Concomitant]
     Indication: BLOOD TRIGLYCERIDES INCREASED
     Dosage: 1 OT, QD (IN THE AFTERNOON)
     Route: 048
     Dates: start: 201406
  9. NEXIUM [Concomitant]
     Active Substance: ESOMEPRAZOLE MAGNESIUM
     Indication: ACIDOSIS
     Dosage: 1 OT, QD (DAILY IN THE MORNING)
     Route: 065
     Dates: start: 201411, end: 201502
  10. GAVINDO [Concomitant]
     Indication: PRODUCT USED FOR UNKNOWN INDICATION
     Route: 065
  11. EXFORGE HCT [Suspect]
     Active Substance: AMLODIPINE BESYLATE\HYDROCHLOROTHIAZIDE\VALSARTAN
     Dosage: 0.5 DF, QD (160/5/12.5 MG (HALF IN THE MORNING AND HALF AT NIGHT)
     Route: 065
  12. LAXOYA [Concomitant]
     Indication: CONSTIPATION
     Dosage: UNK
     Route: 048
  13. EXFORGE HCT [Suspect]
     Active Substance: AMLODIPINE BESYLATE\HYDROCHLOROTHIAZIDE\VALSARTAN
     Dosage: 1.5 DF (160/5/12.5 MG), QD (1 IN THE MORNING AND HALF AT NIGHT)
     Route: 065

REACTIONS (7)
  - Hypersensitivity [Unknown]
  - Papule [Recovered/Resolved]
  - Bleeding time prolonged [Unknown]
  - Off label use [Unknown]
  - Spinal cord disorder [Not Recovered/Not Resolved]
  - Pemphigoid [Recovered/Resolved]
  - Pain in extremity [Not Recovered/Not Resolved]

NARRATIVE: CASE EVENT DATE: 201306
